FAERS Safety Report 11884763 (Version 2)
Quarter: 2016Q3

REPORT INFORMATION
  Report Type: Report from Study
  Country: US (occurrence: US)
  Receive Date: 20160104
  Receipt Date: 20160713
  Transmission Date: 20161109
  Serious: No
  Sender: FDA-Public Use
  Company Number: PHEH2015US027256

PATIENT
  Sex: Male

DRUGS (1)
  1. ENTRESTO [Suspect]
     Active Substance: SACUBITRIL\VALSARTAN
     Indication: PRODUCT USED FOR UNKNOWN INDICATION
     Dosage: TAKING A HALF OF A TABLET TWICE A DAY AS PER HIS DOCTOR
     Route: 065

REACTIONS (2)
  - Drug prescribing error [Unknown]
  - Hypotension [Unknown]
